FAERS Safety Report 15537586 (Version 1)
Quarter: 2018Q4

REPORT INFORMATION
  Report Type: Spontaneous
  Country: US (occurrence: US)
  Receive Date: 20181022
  Receipt Date: 20181022
  Transmission Date: 20190205
  Serious: Yes (Death, Hospitalization)
  Sender: FDA-Public Use
  Company Number: US-JNJFOC-20181019462

PATIENT
  Sex: Female
  Weight: 40.82 kg

DRUGS (2)
  1. TYLENOL [Suspect]
     Active Substance: ACETAMINOPHEN
     Route: 048
  2. TYLENOL [Suspect]
     Active Substance: ACETAMINOPHEN
     Indication: HEADACHE
     Dosage: UNSURE, SHE TOOK MANY ALL THROUGHOUT HER DAY ON TOP OF DRINKING
     Route: 048

REACTIONS (3)
  - Hepatic cancer [Unknown]
  - Product administration error [Unknown]
  - Death [Fatal]
